FAERS Safety Report 8620843-8 (Version None)
Quarter: 2012Q3

REPORT INFORMATION
  Report Type: 
  Country: None (occurrence: None)
  Receive Date: 20120824
  Receipt Date: 20120820
  Transmission Date: 20120928
  Serious: Yes (Other)
  Sender: FDA-Public Use
  Company Number: PHHY2012GB071885

PATIENT
  Age: 68 Year
  Sex: Female

DRUGS (2)
  1. GABAPENTIN [Suspect]
     Dosage: 300 MG, TID
  2. NEURONTIN [Suspect]
     Dosage: UNK

REACTIONS (7)
  - HAEMORRHAGIC STROKE [None]
  - CONFUSIONAL STATE [None]
  - BONE NEOPLASM MALIGNANT [None]
  - HEMIPLEGIA [None]
  - SPEECH DISORDER [None]
  - CIRCUMSTANCE OR INFORMATION CAPABLE OF LEADING TO MEDICATION ERROR [None]
  - RENAL FAILURE ACUTE [None]
